FAERS Safety Report 12964184 (Version 1)
Quarter: 2016Q4

REPORT INFORMATION
  Report Type: Spontaneous
  Country: CZ (occurrence: CZ)
  Receive Date: 20161122
  Receipt Date: 20161122
  Transmission Date: 20170207
  Serious: Yes (Hospitalization)
  Sender: FDA-Public Use
  Company Number: CZ-ELI_LILLY_AND_COMPANY-CZ201611006079

PATIENT
  Age: 30 Year
  Sex: Female

DRUGS (1)
  1. ZYPADHERA [Suspect]
     Active Substance: OLANZAPINE PAMOATE
     Indication: SCHIZOPHRENIA
     Dosage: 405 MG, MONTHLY (1/M), GLUTEAL MUSCLE
     Route: 030
     Dates: start: 20131023, end: 20161109

REACTIONS (8)
  - Restlessness [Unknown]
  - Circulatory collapse [Unknown]
  - Disorientation [Unknown]
  - Blood pressure decreased [Unknown]
  - Nausea [Unknown]
  - Vertigo [Unknown]
  - Confusional state [Unknown]
  - Vomiting [Unknown]

NARRATIVE: CASE EVENT DATE: 20161109
